FAERS Safety Report 9909685 (Version 1)
Quarter: 2014Q1

REPORT INFORMATION
  Report Type: Spontaneous
  Country: US (occurrence: None)
  Receive Date: 20140218
  Receipt Date: 20140218
  Transmission Date: 20141002
  Serious: Yes (Life-Threatening, Hospitalization)
  Sender: FDA-Public Use
  Company Number: None

PATIENT
  Age: 53 Year
  Sex: Male
  Weight: 65.77 kg

DRUGS (1)
  1. TESTOSTERONE [Suspect]
     Indication: BLOOD TESTOSTERONE DECREASED
     Dosage: 1ML?ONCE PER WEEK ?INTO THE MUSCLE
     Dates: start: 20130301, end: 20130502

REACTIONS (5)
  - Tachycardia [None]
  - Hypertension [None]
  - Headache [None]
  - Blood cortisol increased [None]
  - Feeling abnormal [None]
